FAERS Safety Report 21166508 (Version 1)
Quarter: 2022Q3

REPORT INFORMATION
  Report Type: Spontaneous
  Country: JP (occurrence: JP)
  Receive Date: 20220803
  Receipt Date: 20220803
  Transmission Date: 20221026
  Serious: Yes (Death)
  Sender: FDA-Public Use
  Company Number: JP-CHUGAI-2022028979

PATIENT
  Age: 52 Year
  Sex: Male

DRUGS (2)
  1. ACTEMRA [Suspect]
     Active Substance: TOCILIZUMAB
     Indication: COVID-19 pneumonia
     Dosage: 600 MILLIGRAM, SINGLE
     Route: 041
     Dates: start: 20220228, end: 20220228
  2. PREDONINE [Concomitant]
     Active Substance: PREDNISOLONE
     Indication: COVID-19 pneumonia
     Dosage: ONCE PER SIX DAYS
     Route: 041
     Dates: start: 20220227, end: 20220304

REACTIONS (1)
  - Disease progression [Fatal]

NARRATIVE: CASE EVENT DATE: 20220305
